FAERS Safety Report 7448148-1 (Version None)
Quarter: 2011Q2

REPORT INFORMATION
  Report Type: 
  Country: None (occurrence: None)
  Receive Date: 20110429
  Receipt Date: 20101105
  Transmission Date: 20111010
  Serious: Yes (Other)
  Sender: FDA-Public Use
  Company Number: US-ASTRAZENECA-2010SE08973

PATIENT
  Age: 697 Month
  Sex: Female

DRUGS (2)
  1. SEROQUEL [Suspect]
     Route: 048
     Dates: start: 20000801
  2. NEXIUM [Suspect]
     Route: 048

REACTIONS (15)
  - AGITATION [None]
  - DRUG DOSE OMISSION [None]
  - GAIT DISTURBANCE [None]
  - TACHYPHRENIA [None]
  - INSOMNIA [None]
  - VOMITING [None]
  - BLOOD TRIGLYCERIDES INCREASED [None]
  - FEELING OF BODY TEMPERATURE CHANGE [None]
  - REGURGITATION [None]
  - FEMUR FRACTURE [None]
  - MAJOR DEPRESSION [None]
  - DISTURBANCE IN ATTENTION [None]
  - NAUSEA [None]
  - HEADACHE [None]
  - DEPRESSED MOOD [None]
